FAERS Safety Report 4381230-4 (Version None)
Quarter: 2004Q2

REPORT INFORMATION
  Report Type: 
  Country: None (occurrence: None)
  Receive Date: 20040614
  Receipt Date: 20040603
  Transmission Date: 20050107
  Serious: Yes (Hospitalization)
  Sender: FDA-Public Use
  Company Number: SEWYE804704JUN04

PATIENT
  Age: 59 Year
  Sex: Male

DRUGS (10)
  1. RAPAMUNE [Suspect]
     Indication: THERAPEUTIC AGENT TOXICITY
     Dosage: 5 MG 1X PER 1 DAY
     Route: 048
     Dates: start: 20031013, end: 20040116
  2. PREDNISOLONE [Concomitant]
  3. AZATHIOPRINE [Concomitant]
  4. FUROSEMIDE [Concomitant]
  5. DIGOXIN [Concomitant]
  6. APROVEL (IRBESARTAN) [Concomitant]
  7. PAMOL             (PARACETAMOL) [Concomitant]
  8. INSULIN [Concomitant]
  9. NORVASC [Concomitant]
  10. IMOVANE                 (ZOPICLONE) [Concomitant]

REACTIONS (3)
  - ANOREXIA [None]
  - BLOOD PHOSPHORUS INCREASED [None]
  - DERMATITIS EXFOLIATIVE [None]
